FAERS Safety Report 10503310 (Version 1)
Quarter: 2014Q4

REPORT INFORMATION
  Report Type: Spontaneous
  Country: IN (occurrence: IN)
  Receive Date: 20141008
  Receipt Date: 20141008
  Transmission Date: 20150528
  Serious: Yes (Hospitalization)
  Sender: FDA-Public Use
  Company Number: IN-MACLEODS PHARMACEUTICALS US LTD-MAC2014001379

PATIENT

DRUGS (2)
  1. AMLOVAS 10 [Suspect]
     Active Substance: AMLODIPINE BESYLATE
     Indication: SUICIDAL IDEATION
     Dosage: 10 MGX100 TABLETS
     Route: 048
  2. ATENOLOL. [Suspect]
     Active Substance: ATENOLOL
     Indication: SUICIDAL IDEATION
     Dosage: 50 MGX100 TABLET
     Route: 048

REACTIONS (13)
  - Atrioventricular block second degree [Unknown]
  - Shock [Recovered/Resolved]
  - Prolonged expiration [Recovered/Resolved]
  - Sensory disturbance [Recovering/Resolving]
  - Overdose [Unknown]
  - Intentional overdose [None]
  - Acute kidney injury [Recovered/Resolved]
  - Tachypnoea [Recovered/Resolved]
  - Anuria [Recovered/Resolved]
  - Lactic acidosis [Recovered/Resolved]
  - Hypotension [Recovered/Resolved]
  - Tachycardia [Recovered/Resolved]
  - Metabolic acidosis [Recovered/Resolved]
